FAERS Safety Report 6629104-X (Version None)
Quarter: 2010Q1

REPORT INFORMATION
  Report Type: 
  Country: None (occurrence: None)
  Receive Date: 20100311
  Receipt Date: 20090817
  Transmission Date: 20100710
  Serious: No
  Sender: FDA-Public Use
  Company Number: US-BIOGENIDEC-2009BI025821

PATIENT
  Age: 47 Year
  Sex: Female

DRUGS (4)
  1. AVONEX [Suspect]
     Indication: MULTIPLE SCLEROSIS
     Route: 030
  2. AVONEX [Suspect]
     Route: 030
  3. VICODIN [Concomitant]
     Indication: PAIN IN EXTREMITY
     Route: 048
  4. OXYCONTIN [Concomitant]
     Indication: PAIN IN EXTREMITY

REACTIONS (4)
  - BALANCE DISORDER [None]
  - COGNITIVE DISORDER [None]
  - INJECTION SITE PRURITUS [None]
  - PAIN IN EXTREMITY [None]
